FAERS Safety Report 18626884 (Version 1)
Quarter: 2020Q4

REPORT INFORMATION
  Report Type: Spontaneous
  Country: FR (occurrence: FR)
  Receive Date: 20201217
  Receipt Date: 20201217
  Transmission Date: 20210114
  Serious: Yes (Other)
  Sender: FDA-Public Use
  Company Number: FR-AUROBINDO-AUR-APL-2020-061003

PATIENT
  Age: 46 Year
  Sex: Male
  Weight: 134 kg

DRUGS (2)
  1. MEROPENEM. [Suspect]
     Active Substance: MEROPENEM
     Indication: SUPERINFECTION BACTERIAL
     Dosage: 6 GRAM, ONCE A DAY
     Route: 042
     Dates: start: 20201109, end: 20201122
  2. CEFTAZIDIME. [Suspect]
     Active Substance: CEFTAZIDIME
     Indication: SUPERINFECTION BACTERIAL
     Dosage: 2 GRAM, ONCE A DAY
     Route: 041
     Dates: start: 20201109, end: 20201119

REACTIONS (1)
  - Rash maculo-papular [Unknown]

NARRATIVE: CASE EVENT DATE: 20201117
